FAERS Safety Report 4957118-4 (Version None)
Quarter: 2006Q1

REPORT INFORMATION
  Report Type: 
  Country: None (occurrence: None)
  Receive Date: 20060329
  Receipt Date: 20050511
  Transmission Date: 20060701
  Serious: Yes (Hospitalization)
  Sender: FDA-Public Use
  Company Number: US-MERCK-0505USA01422

PATIENT
  Age: 63 Year
  Sex: Male
  Weight: 77 kg

DRUGS (3)
  1. VIOXX [Suspect]
     Indication: BACK PAIN
     Route: 048
     Dates: start: 20000101, end: 20041001
  2. VIOXX [Suspect]
     Indication: OSTEOARTHRITIS
     Route: 048
     Dates: start: 20000101, end: 20041001
  3. VITAMINS (UNSPECIFIED) [Concomitant]
     Route: 065

REACTIONS (23)
  - CALCULUS URETERIC [None]
  - CARDIAC FAILURE CHRONIC [None]
  - CARDIAC FAILURE CONGESTIVE [None]
  - CEREBROVASCULAR ACCIDENT [None]
  - CHEST PAIN [None]
  - CHOLELITHIASIS [None]
  - CIRCADIAN RHYTHM SLEEP DISORDER [None]
  - CORONARY ARTERY DISEASE [None]
  - DIASTOLIC DYSFUNCTION [None]
  - DYSLIPIDAEMIA [None]
  - DYSPNOEA EXERTIONAL [None]
  - ERECTILE DYSFUNCTION [None]
  - HYPONATRAEMIA [None]
  - LUNG DISORDER [None]
  - MYOCARDIAL INFARCTION [None]
  - ORGAN FAILURE [None]
  - PULMONARY EMBOLISM [None]
  - RENAL CYST [None]
  - RENAL DISORDER [None]
  - SLEEP APNOEA SYNDROME [None]
  - THROMBOSIS [None]
  - VENTRICULAR EXTRASYSTOLES [None]
  - VENTRICULAR HYPERTROPHY [None]
